FAERS Safety Report 21988372 (Version 11)
Quarter: 2023Q4

REPORT INFORMATION
  Report Type: Report from Study
  Country: AU (occurrence: AU)
  Receive Date: 20230214
  Receipt Date: 20231110
  Transmission Date: 20240109
  Serious: Yes (Hospitalization, Other)
  Sender: FDA-Public Use
  Company Number: AU-002147023-NVSC2022AU070815

PATIENT
  Sex: Female

DRUGS (4)
  1. KESIMPTA [Suspect]
     Active Substance: OFATUMUMAB
     Indication: Relapsing-remitting multiple sclerosis
     Dosage: 20 MG, QMO
     Route: 058
     Dates: start: 20220207
  2. KESIMPTA [Suspect]
     Active Substance: OFATUMUMAB
     Dosage: 20 MG, QMO
     Route: 058
     Dates: start: 20230115
  3. KESIMPTA [Suspect]
     Active Substance: OFATUMUMAB
     Dosage: 20 MG, QMO
     Route: 058
     Dates: start: 20230426
  4. KESIMPTA [Suspect]
     Active Substance: OFATUMUMAB
     Dosage: 20 MG, QMO
     Route: 058
     Dates: start: 20230921

REACTIONS (17)
  - Decreased immune responsiveness [Unknown]
  - White blood cell count decreased [Unknown]
  - Illness [Unknown]
  - Localised infection [Unknown]
  - Necrotising ulcerative gingivostomatitis [Unknown]
  - Lower respiratory tract infection [Unknown]
  - Weight increased [Unknown]
  - Thirst [Unknown]
  - Headache [Unknown]
  - Fatigue [Unknown]
  - Swelling [Unknown]
  - Wound [Unknown]
  - SARS-CoV-2 test positive [Unknown]
  - Chest pain [Not Recovered/Not Resolved]
  - Cough [Not Recovered/Not Resolved]
  - Painful respiration [Unknown]
  - Inappropriate schedule of product administration [Unknown]
